FAERS Safety Report 4968856-1 (Version None)
Quarter: 2006Q2

REPORT INFORMATION
  Report Type: 
  Country: None (occurrence: None)
  Receive Date: 20060405
  Receipt Date: 20060324
  Transmission Date: 20061013
  Serious: Yes (Other)
  Sender: FDA-Public Use
  Company Number: 2006042262

PATIENT
  Age: 72 Year
  Sex: Male
  Weight: 84.8226 kg

DRUGS (6)
  1. LIPITOR [Suspect]
     Indication: BLOOD CHOLESTEROL INCREASED
     Dosage: 10 MG (10 MG, 1 IN 1 D), UNKNOWN
     Dates: start: 19980101
  2. EZETROL (EZETIMIBE) [Suspect]
     Indication: LOW DENSITY LIPOPROTEIN INCREASED
     Dosage: 10 MG (10 MG, 1 IN 1 D), UNKNOWN
     Dates: start: 20050101
  3. BETA BLOCKING AGENTS (BETA BLOCKING AGENTS) [Concomitant]
  4. WARFARIN SODIUM [Concomitant]
  5. HYDROCHLOROTHIAZIDE [Concomitant]
  6. COVERSYL (PERINDOPRIL) [Concomitant]

REACTIONS (5)
  - ATRIAL FIBRILLATION [None]
  - FLATULENCE [None]
  - KNEE ARTHROPLASTY [None]
  - LOW DENSITY LIPOPROTEIN INCREASED [None]
  - STOMACH DISCOMFORT [None]
